FAERS Safety Report 24465738 (Version 1)
Quarter: 2024Q4

REPORT INFORMATION
  Report Type: Report from Study
  Country: US (occurrence: US)
  Receive Date: 20241018
  Receipt Date: 20241018
  Transmission Date: 20250114
  Serious: No
  Sender: ROCHE
  Company Number: US-ROCHE-3525661

PATIENT

DRUGS (5)
  1. XOLAIR [Suspect]
     Active Substance: OMALIZUMAB
     Indication: Product used for unknown indication
     Route: 065
  2. MONTELUKAST [Concomitant]
     Active Substance: MONTELUKAST
  3. QUERCETIN [Concomitant]
     Active Substance: QUERCETIN
  4. ZINC [Concomitant]
     Active Substance: ZINC
  5. VITAMIN C [Concomitant]
     Active Substance: ASCORBIC ACID

REACTIONS (3)
  - Throat tightness [Unknown]
  - Weight decreased [Unknown]
  - Muscle atrophy [Unknown]
